FAERS Safety Report 14851967 (Version 2)
Quarter: 2019Q2

REPORT INFORMATION
  Report Type: Report from Study
  Country: NL (occurrence: NL)
  Receive Date: 20180507
  Receipt Date: 20190405
  Transmission Date: 20190711
  Serious: Yes (Hospitalization, Other)
  Sender: FDA-Public Use
  Company Number: NL-TEVA-2018-NL-868720

PATIENT
  Age: 56 Year
  Sex: Female
  Weight: 98 kg

DRUGS (14)
  1. THIOSIX TABLETS [Suspect]
     Active Substance: THIOGUANINE ANHYDROUS
     Dosage: 25 MILLIGRAM DAILY;
     Route: 065
     Dates: start: 20180503
  2. METFORMINE TABLET 500 MG [Concomitant]
     Dosage: 500 MILLIGRAM DAILY;
     Route: 065
  3. HYDROXOCOBALAMINE INJECTION 500 UM/ML AMP 2ML [Concomitant]
     Dosage: 1 DOSAGE FORMS DAILY; 1 DOSAGE FORM = 500 UM/ML IN AMPOULE OF 2 ML
     Route: 065
  4. CALCIUM CARBONATE TABLET 500 MG CF [Concomitant]
     Dosage: 1000 MILLIGRAM DAILY;
     Route: 065
  5. LISINOPRIL TABLET 20 MG [Concomitant]
     Dosage: 20 MILLIGRAM DAILY;
     Route: 065
  6. MOVIPREP ORANGE POEDER VOOR DRANK IN SACHET A+B [Concomitant]
     Indication: PRODUCT USED FOR UNKNOWN INDICATION
     Dosage: ONCE 2 BAGS, POWDER FOR DRINK
     Dates: start: 20180305, end: 20180305
  7. SPRIRIVA RESPIMAT SOLLUTION FOR INHALATION 2,5MCG/DO [Concomitant]
     Indication: PRODUCT USED FOR UNKNOWN INDICATION
     Dosage: 2 DOSAGE FORMS DAILY; ONE DOSAGE FORM CONTAINS 2,5MCG TIOTROPIUMBROMIDE
  8. MTX [Suspect]
     Active Substance: METHOTREXATE SODIUM
     Route: 065
  9. TRAMADOL  CAPSULE 50 MG [Concomitant]
     Dosage: 50 MILLIGRAM DAILY;
     Route: 065
  10. BUDESONIDE 3 MG CAPSULE MGA [Concomitant]
     Dosage: 3 MILLIGRAM DAILY;
  11. PARACETAMOL [Concomitant]
     Active Substance: ACETAMINOPHEN
     Indication: PRODUCT USED FOR UNKNOWN INDICATION
     Dosage: ONCE 1000 MG
     Dates: start: 20180308, end: 20180308
  12. THIOSIX TABLETS [Suspect]
     Active Substance: THIOGUANINE ANHYDROUS
     Indication: INFLAMMATORY BOWEL DISEASE
     Dosage: 25 MILLIGRAM DAILY;
     Route: 065
     Dates: start: 20170531, end: 20180305
  13. PANTOPRAZOL TABLET MSR 40 MG [Concomitant]
     Dosage: 40 MILLIGRAM DAILY;
     Route: 065
  14. SALBUTAMOL INHALATION 200 UG [Concomitant]
     Dosage: 800 MICROGRAM DAILY; AS REQUIRED
     Route: 065

REACTIONS (4)
  - Hepatic cirrhosis [Unknown]
  - Abdominal pain upper [Unknown]
  - Non-alcoholic steatohepatitis [Unknown]
  - Gastroenteritis clostridial [Unknown]

NARRATIVE: CASE EVENT DATE: 20180202
